FAERS Safety Report 5441332-8 (Version None)
Quarter: 2007Q3

REPORT INFORMATION
  Report Type: 
  Country: None (occurrence: None)
  Receive Date: 20070903
  Receipt Date: 20070828
  Transmission Date: 20080115
  Serious: Yes (Other)
  Sender: FDA-Public Use
  Company Number: PHRM2007FR02095

PATIENT
  Age: 84 Year
  Sex: Male

DRUGS (1)
  1. LAMISIL [Suspect]
     Indication: TINEA PEDIS
     Dosage: 250 MG, QD
     Route: 048
     Dates: end: 20070530

REACTIONS (9)
  - BACK PAIN [None]
  - BLOOD IMMUNOGLOBULIN G INCREASED [None]
  - JOINT SWELLING [None]
  - MOBILITY DECREASED [None]
  - MYALGIA [None]
  - PAIN IN EXTREMITY [None]
  - PERIPHERAL NERVE LESION [None]
  - POLYARTHRITIS [None]
  - RHEUMATOID FACTOR INCREASED [None]
